FAERS Safety Report 10707972 (Version 1)
Quarter: 2015Q1

REPORT INFORMATION
  Report Type: Spontaneous
  Country: SE (occurrence: SE)
  Receive Date: 20150113
  Receipt Date: 20150113
  Transmission Date: 20150721
  Serious: Yes (Hospitalization, Other)
  Sender: FDA-Public Use
  Company Number: SE-PFIZER INC-2015008054

PATIENT
  Age: 80 Year
  Sex: Male

DRUGS (3)
  1. SIMVASTATIN ARROW [Concomitant]
     Active Substance: SIMVASTATIN
  2. DETRUSITOL [Suspect]
     Active Substance: TOLTERODINE TARTRATE
     Indication: MICTURITION URGENCY
     Dosage: 2 MG MORNING AND EVENING
     Route: 048
     Dates: start: 20141126, end: 20141205
  3. MADOPARK DEPOT [Concomitant]

REACTIONS (8)
  - Constipation [Recovered/Resolved]
  - Vomiting [Unknown]
  - Nausea [Unknown]
  - General physical health deterioration [Unknown]
  - Urinary retention [Recovered/Resolved]
  - Malaise [Unknown]
  - Acute kidney injury [Recovered/Resolved]
  - Hydronephrosis [Recovered/Resolved]

NARRATIVE: CASE EVENT DATE: 2014
